FAERS Safety Report 7954205-3 (Version None)
Quarter: 2011Q4

REPORT INFORMATION
  Report Type: 
  Country: None (occurrence: None)
  Receive Date: 20111202
  Receipt Date: 20111130
  Transmission Date: 20120403
  Serious: Yes (Other)
  Sender: FDA-Public Use
  Company Number: VE-PFIZER INC-2011280928

PATIENT
  Age: 62 Year
  Sex: Female

DRUGS (3)
  1. GLUCOFAGE [Concomitant]
     Indication: DIABETES MELLITUS
     Dosage: UNK
     Route: 048
  2. ZOLOFT [Suspect]
     Indication: INSOMNIA
     Dosage: 50 MG, 1X/DAY
     Route: 048
     Dates: start: 20110101, end: 20110101
  3. MEMANTINE HYDROCHLORIDE [Concomitant]
     Indication: OXYGEN SUPPLEMENTATION
     Dosage: UNK
     Route: 048

REACTIONS (1)
  - HYPERTENSIVE CRISIS [None]
